FAERS Safety Report 25898514 (Version 1)
Quarter: 2025Q4

REPORT INFORMATION
  Report Type: Spontaneous
  Country: EU (occurrence: EU)
  Receive Date: 20251009
  Receipt Date: 20251009
  Transmission Date: 20260118
  Serious: Yes (Hospitalization, Other)
  Sender: TEVA
  Company Number: None

PATIENT
  Age: 85 Year
  Sex: Male

DRUGS (19)
  1. POMALIDOMIDE [Suspect]
     Active Substance: POMALIDOMIDE
     Indication: Plasma cell myeloma
     Dosage: 1ST CYCLE (14 DAYS), POMALIDOMIDA (8377A)
     Route: 048
     Dates: start: 20250513, end: 20250526
  2. POMALIDOMIDE [Suspect]
     Active Substance: POMALIDOMIDE
     Indication: Plasma cell myeloma
     Dosage: 2ND CYCLE (14 DAYS)
     Route: 048
     Dates: start: 20250616, end: 20250629
  3. POMALIDOMIDE [Suspect]
     Active Substance: POMALIDOMIDE
     Indication: Plasma cell myeloma
     Dosage: 3RD CYCLE (14 DAYS)
     Route: 048
     Dates: start: 20250714, end: 20250728
  4. POMALIDOMIDE [Suspect]
     Active Substance: POMALIDOMIDE
     Indication: Plasma cell myeloma
     Dosage: 4TH CYCLE (21 DAYS)
     Route: 048
     Dates: start: 20250826, end: 20250915
  5. SPIRIVA RESPIMAT [Concomitant]
     Active Substance: TIOTROPIUM BROMIDE
     Indication: Product used for unknown indication
     Dosage: 1 CARTRIDGE OF 60 ACTUATIONS (30 DOSES)
     Route: 065
     Dates: start: 20200714
  6. PANTOPRAZOL AUROVITAS [Concomitant]
     Indication: Product used for unknown indication
     Dosage: GASTRORESISTANT EFG TABLETS, 28 TABLETS
     Route: 048
     Dates: start: 20250618
  7. FENTANYL TRANSDERMAL SYSTEM [Concomitant]
     Active Substance: FENTANYL
     Indication: Product used for unknown indication
     Dosage: FENTANYL MATRIX STADA, 2 MICROGRAMS/H TRANSDERMAL PATCHES EFG, 5 PATCHES
     Route: 062
     Dates: start: 20240730
  8. BISOPROLOL TEVA [Concomitant]
     Indication: Product used for unknown indication
     Dosage: 28 TABLETS
     Route: 048
     Dates: start: 20230911
  9. LINAGLIPTIN [Concomitant]
     Active Substance: LINAGLIPTIN
     Indication: Product used for unknown indication
     Dosage: 30 TABLETS
     Route: 048
     Dates: start: 20230413
  10. VALACYCLOVIR HYDROCHLORIDE [Concomitant]
     Active Substance: VALACYCLOVIR HYDROCHLORIDE
     Indication: Product used for unknown indication
     Dosage: FILM-COATED TABLETS EFG, 42 TABLETS
     Route: 048
     Dates: start: 20240115
  11. FUROSEMIDE [Concomitant]
     Active Substance: FUROSEMIDE
     Indication: Product used for unknown indication
     Dosage: EFG TABLETS, 30 TABLETS
     Route: 048
     Dates: start: 20211215
  12. LORAZEPAM [Concomitant]
     Active Substance: LORAZEPAM
     Indication: Product used for unknown indication
     Dosage: 30 TABLETS
     Route: 048
     Dates: start: 20231117
  13. TRAZODONE HYDROCHLORIDE [Concomitant]
     Active Substance: TRAZODONE HYDROCHLORIDE
     Indication: Product used for unknown indication
     Dosage: EFG TABLETS, 60 TABLETS (PVC/PVDC-AL BLISTER)
     Route: 048
     Dates: start: 20240516
  14. APIDRA [Concomitant]
     Active Substance: INSULIN GLULISINE
     Indication: Product used for unknown indication
     Dosage: DAILY PATTERN: 3-8-8, 100 UNITS/ML, SOLOSTAR INJECTABLE SOLUTION IN PRE-FILLED PEN, 5 PRE-FILLED ...
     Route: 058
     Dates: start: 20220913
  15. TRESIBA [Concomitant]
     Active Substance: INSULIN DEGLUDEC
     Indication: Product used for unknown indication
     Dosage: 100 UNITS/ML FLEXTOUCH INJECTABLE SOLUTION IN PRE-FILLED PEN, 5 PRE-FILLED PENS OF 3 ML
     Route: 058
     Dates: start: 20220620
  16. PANCRELIPASE [Concomitant]
     Active Substance: PANCRELIPASE
     Indication: Product used for unknown indication
     Dosage: GASTRO-RESISTANT HARD CAPSULES, 100 CAPSULES
     Route: 048
     Dates: start: 20160301
  17. DAPAGLIFLOZIN [Concomitant]
     Active Substance: DAPAGLIFLOZIN
     Indication: Product used for unknown indication
     Dosage: 28 TABLETS
     Route: 048
     Dates: start: 20220523
  18. SULFAMETHOXAZOLE\TRIMETHOPRIM [Concomitant]
     Active Substance: SULFAMETHOXAZOLE\TRIMETHOPRIM
     Indication: Product used for unknown indication
     Dosage: 160 MG/800 MG, 50 TABLETS
     Route: 048
     Dates: start: 20230809
  19. ELIQUIS [Concomitant]
     Active Substance: APIXABAN
     Indication: Product used for unknown indication
     Dosage: 60 TABLETS
     Route: 048
     Dates: start: 20241008

REACTIONS (1)
  - Cardiac failure congestive [Recovered/Resolved]

NARRATIVE: CASE EVENT DATE: 20250911
